FAERS Safety Report 9204695 (Version 1)
Quarter: 2013Q2

REPORT INFORMATION
  Report Type: Spontaneous
  Country: JP (occurrence: JP)
  Receive Date: 20130402
  Receipt Date: 20130402
  Transmission Date: 20140414
  Serious: Yes (Other)
  Sender: FDA-Public Use
  Company Number: JP-GILEAD-2011-0039952

PATIENT
  Age: 54 Year
  Sex: Male

DRUGS (3)
  1. VIREAD [Suspect]
     Indication: ACQUIRED IMMUNODEFICIENCY SYNDROME
     Route: 048
     Dates: start: 200701
  2. EMTRIVA [Suspect]
     Indication: ACQUIRED IMMUNODEFICIENCY SYNDROME
     Route: 048
     Dates: start: 200701
  3. STOCRIN [Suspect]
     Indication: ACQUIRED IMMUNODEFICIENCY SYNDROME
     Route: 048
     Dates: start: 200701

REACTIONS (2)
  - Anaemia [Recovered/Resolved]
  - Immune reconstitution inflammatory syndrome [Recovered/Resolved]
